FAERS Safety Report 7952348-1 (Version None)
Quarter: 2011Q4

REPORT INFORMATION
  Report Type: 
  Country: None (occurrence: None)
  Receive Date: 20111201
  Receipt Date: 20111122
  Transmission Date: 20120403
  Serious: Yes (Death, Hospitalization)
  Sender: FDA-Public Use
  Company Number: US-ACTELION-A-US2011-56458

PATIENT

DRUGS (11)
  1. EPOPROSTENOL SODIUM [Suspect]
     Indication: PULMONARY ARTERIAL HYPERTENSION
     Dosage: 23 NG/KG, PER MIN
     Route: 042
     Dates: start: 20110701, end: 20111121
  2. MEDROXYPROGESTERONE [Concomitant]
  3. HYDROXYCHLOROQUINE SULFATE [Concomitant]
  4. SILDENAFIL [Concomitant]
  5. NORCO [Concomitant]
  6. LASIX [Concomitant]
  7. ALPRAZOLAM [Concomitant]
  8. SPIRONOLACTONE [Concomitant]
  9. ZOLPIDEM [Concomitant]
  10. NASONEX [Concomitant]
  11. KLOR-CON [Concomitant]

REACTIONS (3)
  - DEATH [None]
  - PULMONARY ARTERIAL HYPERTENSION [None]
  - DISEASE PROGRESSION [None]
